FAERS Safety Report 10554368 (Version 1)
Quarter: 2014Q4

REPORT INFORMATION
  Report Type: Spontaneous
  Country: US (occurrence: US)
  Receive Date: 20141030
  Receipt Date: 20141030
  Transmission Date: 20150529
  Serious: Yes (Other)
  Sender: FDA-Public Use
  Company Number: US-ASTRAZENECA-2014SE80460

PATIENT
  Sex: Male

DRUGS (1)
  1. CRESTOR [Suspect]
     Active Substance: ROSUVASTATIN CALCIUM
     Indication: BLOOD CHOLESTEROL
     Route: 048
     Dates: start: 2011, end: 20141008

REACTIONS (9)
  - Feeling abnormal [Unknown]
  - Asthenia [Unknown]
  - Nervousness [Unknown]
  - Therapy cessation [Unknown]
  - Tenderness [Unknown]
  - Hypoaesthesia [Unknown]
  - Pain in extremity [Unknown]
  - Myalgia [Unknown]
  - Decreased activity [Unknown]

NARRATIVE: CASE EVENT DATE: 201407
